FAERS Safety Report 11577292 (Version 1)
Quarter: 2015Q3

REPORT INFORMATION
  Report Type: Spontaneous
  Country: US (occurrence: US)
  Receive Date: 20150916
  Receipt Date: 20150916
  Transmission Date: 20151125
  Serious: No
  Sender: FDA-Public Use
  Company Number: US-ELI_LILLY_AND_COMPANY-US201306002543

PATIENT
  Age: 66 Year
  Sex: Female

DRUGS (5)
  1. HUMALOG [Suspect]
     Active Substance: INSULIN LISPRO
     Dosage: UNK
     Route: 058
     Dates: start: 201305
  2. HUMALOG [Suspect]
     Active Substance: INSULIN LISPRO
     Indication: TYPE 2 DIABETES MELLITUS
     Dosage: UNK
     Route: 058
     Dates: start: 201210
  3. INSULIN, ANIMAL [Suspect]
     Active Substance: INSULIN NOS
  4. HUMALOG [Suspect]
     Active Substance: INSULIN LISPRO
     Dosage: UNK
  5. INSULIN, ANIMAL [Suspect]
     Active Substance: INSULIN NOS

REACTIONS (5)
  - Hypersensitivity [Unknown]
  - Hot flush [Unknown]
  - Vision blurred [Unknown]
  - Blood glucose increased [Unknown]
  - Night sweats [Unknown]

NARRATIVE: CASE EVENT DATE: 201305
